FAERS Safety Report 11365463 (Version 2)
Quarter: 2015Q3

REPORT INFORMATION
  Report Type: Spontaneous
  Country: JP (occurrence: JP)
  Receive Date: 20150811
  Receipt Date: 20150904
  Transmission Date: 20151125
  Serious: Yes (Other)
  Sender: FDA-Public Use
  Company Number: JP-ROCHE-1617470

PATIENT
  Age: 53 Year
  Sex: Female

DRUGS (3)
  1. DOCETAXEL. [Suspect]
     Active Substance: DOCETAXEL
     Indication: BREAST CANCER
     Dosage: UNCERTAIN DOSAGE AND FIVE COURSES
     Route: 041
     Dates: start: 201408
  2. PERJETA [Suspect]
     Active Substance: PERTUZUMAB
     Indication: BREAST CANCER
     Dosage: UNCERTAIN DOSAGE AND FIVE COURSES?420MG/14ML
     Route: 041
     Dates: start: 201408
  3. HERCEPTIN [Suspect]
     Active Substance: TRASTUZUMAB
     Indication: BREAST CANCER
     Dosage: UNCERTAIN DOSAGE AND FIVE COURSES
     Route: 041
     Dates: start: 201408

REACTIONS (1)
  - Interstitial lung disease [Unknown]
